FAERS Safety Report 10944893 (Version 6)
Quarter: 2016Q2

REPORT INFORMATION
  Report Type: Report from Study
  Country: US (occurrence: US)
  Receive Date: 20150323
  Receipt Date: 20160411
  Transmission Date: 20160815
  Serious: No
  Sender: FDA-Public Use
  Company Number: US-AMGEN-USASL2015024927

PATIENT
  Age: 52 Year
  Sex: Male

DRUGS (1)
  1. ENBREL [Suspect]
     Active Substance: ETANERCEPT
     Indication: RHEUMATOID ARTHRITIS
     Dosage: 50 MG, WEEKLY
     Route: 065
     Dates: start: 20120423

REACTIONS (17)
  - Rash [Unknown]
  - Balance disorder [Recovered/Resolved]
  - Joint lock [Not Recovered/Not Resolved]
  - Malaise [Unknown]
  - Upper limb fracture [Recovered/Resolved]
  - Eye irritation [Unknown]
  - Abdominal discomfort [Not Recovered/Not Resolved]
  - Fall [Recovered/Resolved]
  - Pain [Not Recovered/Not Resolved]
  - Fatigue [Unknown]
  - Injury [Not Recovered/Not Resolved]
  - Memory impairment [Not Recovered/Not Resolved]
  - Visual impairment [Unknown]
  - Arthritis [Unknown]
  - Head injury [Not Recovered/Not Resolved]
  - Back pain [Unknown]
  - Herpes zoster [Unknown]

NARRATIVE: CASE EVENT DATE: 2014
